FAERS Safety Report 8154311-7 (Version None)
Quarter: 2012Q1

REPORT INFORMATION
  Report Type: 
  Country: None (occurrence: None)
  Receive Date: 20120217
  Receipt Date: 20120217
  Transmission Date: 20120608
  Serious: Yes (Hospitalization)
  Sender: FDA-Public Use
  Company Number: None

PATIENT
  Sex: Female
  Weight: 30.4 kg

DRUGS (2)
  1. VINCRISTINE SULFATE [Suspect]
     Dosage: 2 MG
  2. DOXORUBICIN HCL [Suspect]
     Dosage: 30 MG

REACTIONS (9)
  - DIARRHOEA [None]
  - TACHYCARDIA [None]
  - COLITIS [None]
  - FATIGUE [None]
  - HYPOTENSION [None]
  - HYPOPERFUSION [None]
  - HAEMODYNAMIC INSTABILITY [None]
  - PYREXIA [None]
  - SEPSIS [None]
